FAERS Safety Report 19259224 (Version 3)
Quarter: 2023Q1

REPORT INFORMATION
  Report Type: Report from Study
  Country: US (occurrence: US)
  Receive Date: 20210514
  Receipt Date: 20230105
  Transmission Date: 20230418
  Serious: Yes (Hospitalization)
  Sender: FDA-Public Use
  Company Number: US-TAKEDA-2021TUS029678

PATIENT
  Age: 74 Year
  Sex: Female
  Weight: 74.83 kg

DRUGS (16)
  1. HUMAN IMMUNOGLOBULIN G [Suspect]
     Active Substance: HUMAN IMMUNOGLOBULIN G
     Indication: Primary immunodeficiency syndrome
     Dosage: 8 GRAM EVERY 7 DAYS
     Route: 058
     Dates: start: 20210421
  2. HUMAN IMMUNOGLOBULIN G [Suspect]
     Active Substance: HUMAN IMMUNOGLOBULIN G
     Dosage: 8 GRAM EVERY 7 DAYS
     Route: 065
     Dates: start: 20210429
  3. DIPHENHYDRAMINE [Concomitant]
     Active Substance: DIPHENHYDRAMINE
  4. ADVIL [Concomitant]
     Active Substance: IBUPROFEN
  5. ASPIRIN [Concomitant]
     Active Substance: ASPIRIN
  6. EPINEPHRINE [Concomitant]
     Active Substance: EPINEPHRINE
  7. SYNTHROID [Concomitant]
     Active Substance: LEVOTHYROXINE SODIUM
  8. ACETAMINOPHEN [Concomitant]
     Active Substance: ACETAMINOPHEN
  9. ALBUTEROL [Concomitant]
     Active Substance: ALBUTEROL
  10. LORAZEPAM [Concomitant]
     Active Substance: LORAZEPAM
  11. PROAIR HFA [Concomitant]
     Active Substance: ALBUTEROL SULFATE
  12. AMLODIPINE BESYLATE AND BENAZEPRIL HYDROCHLORIDE [Concomitant]
     Active Substance: AMLODIPINE BESYLATE\BENAZEPRIL HYDROCHLORIDE
  13. PROTONIX [Concomitant]
     Active Substance: PANTOPRAZOLE SODIUM
  14. CARAFATE [Concomitant]
     Active Substance: SUCRALFATE
  15. LIDOCAINE [Concomitant]
     Active Substance: LIDOCAINE
  16. ALBUTEROL\IPRATROPIUM [Concomitant]
     Active Substance: ALBUTEROL\IPRATROPIUM

REACTIONS (3)
  - Blood pressure increased [Unknown]
  - Respiratory tract infection [Unknown]
  - Influenza [Unknown]

NARRATIVE: CASE EVENT DATE: 20221025
